FAERS Safety Report 15608607 (Version 2)
Quarter: 2018Q4

REPORT INFORMATION
  Report Type: Spontaneous
  Country: CZ (occurrence: CZ)
  Receive Date: 20181112
  Receipt Date: 20181217
  Transmission Date: 20190205
  Serious: Yes (Death, Hospitalization, Other)
  Sender: FDA-Public Use
  Company Number: CZ-SA-2018SA305906

PATIENT
  Age: 24 Year
  Sex: Female

DRUGS (7)
  1. DOCETAXEL. [Suspect]
     Active Substance: DOCETAXEL
     Dosage: UNK, Q3W
     Route: 042
     Dates: start: 201411
  2. CISPLATIN. [Suspect]
     Active Substance: CISPLATIN
     Indication: LUNG ADENOCARCINOMA
     Dosage: UNK
     Dates: start: 20140720
  3. PEMETREXED DISODIUM [Suspect]
     Active Substance: PEMETREXED DISODIUM
     Indication: NON-SMALL CELL LUNG CANCER STAGE IV
     Dosage: UNK
     Dates: start: 20140720
  4. DENOSUMAB [Suspect]
     Active Substance: DENOSUMAB
     Indication: METASTASES TO BONE
     Dosage: UNK
     Dates: start: 201407
  5. NINTEDANIB [Suspect]
     Active Substance: NINTEDANIB
     Indication: NON-SMALL CELL LUNG CANCER STAGE IV
     Dosage: 400 MILLIGRAM DAILY GIVEN ON CYCLE DAYS 2-22
     Dates: start: 20140821
  6. DOCETAXEL. [Suspect]
     Active Substance: DOCETAXEL
     Indication: LUNG ADENOCARCINOMA
     Dosage: UNK UNK, Q3W
     Route: 042
     Dates: start: 20140821, end: 20140821
  7. FOLIC ACID. [Suspect]
     Active Substance: FOLIC ACID
     Indication: NON-SMALL CELL LUNG CANCER STAGE IV
     Dosage: UNK
     Dates: start: 201407

REACTIONS (15)
  - Hypocalcaemia [Not Recovered/Not Resolved]
  - Oral pain [Unknown]
  - Gastrointestinal toxicity [Unknown]
  - Vomiting [Unknown]
  - Oral candidiasis [Unknown]
  - Hypokalaemia [Unknown]
  - Nausea [Unknown]
  - Therapeutic response decreased [Unknown]
  - Hepatotoxicity [Unknown]
  - Disease progression [Fatal]
  - Duodenal ulcer haemorrhage [Unknown]
  - Intestinal haemorrhage [Unknown]
  - Candida infection [Recovered/Resolved]
  - Anaemia [Unknown]
  - Diarrhoea [Recovered/Resolved]

NARRATIVE: CASE EVENT DATE: 2014
